FAERS Safety Report 5831761-2 (Version None)
Quarter: 2008Q3

REPORT INFORMATION
  Report Type: 
  Country: None (occurrence: None)
  Receive Date: 20080803
  Receipt Date: 20080724
  Transmission Date: 20090109
  Serious: Yes (Other)
  Sender: FDA-Public Use
  Company Number: PHHY2008BR15287

PATIENT
  Sex: Female

DRUGS (1)
  1. DIOVAN HCT [Suspect]
     Indication: HYPERTENSION
     Dosage: 160MG VAL/12.5MG HCT QD
     Route: 048
     Dates: start: 20080501

REACTIONS (6)
  - ANXIETY [None]
  - EPISTAXIS [None]
  - FEAR [None]
  - PANIC DISORDER [None]
  - PARAESTHESIA [None]
  - TREMOR [None]
